FAERS Safety Report 9167745 (Version 1)
Quarter: 2013Q1

REPORT INFORMATION
  Report Type: Spontaneous
  Country: US (occurrence: US)
  Receive Date: 20130318
  Receipt Date: 20130318
  Transmission Date: 20140127
  Serious: No
  Sender: FDA-Public Use
  Company Number: US-PFIZER INC-2013083777

PATIENT
  Age: 69 Year
  Sex: Female
  Weight: 72.56 kg

DRUGS (4)
  1. ADVIL [Suspect]
     Indication: PAIN
     Dosage: 400 MG (TWO 200MG), ONCE A DAY
     Route: 048
     Dates: start: 2000
  2. ADVIL [Suspect]
     Indication: HEADACHE
  3. CLARITHROMYCIN [Concomitant]
     Indication: SINUSITIS
     Dosage: UNK
  4. CLARITHROMYCIN [Concomitant]
     Indication: BRONCHITIS

REACTIONS (3)
  - Headache [Recovered/Resolved]
  - Tinnitus [Recovering/Resolving]
  - Blood pressure increased [Unknown]
